FAERS Safety Report 25187990 (Version 1)
Quarter: 2025Q2

REPORT INFORMATION
  Report Type: Spontaneous
  Country: GB (occurrence: GB)
  Receive Date: 20250411
  Receipt Date: 20250411
  Transmission Date: 20250716
  Serious: Yes (Other)
  Sender: MSN LABORATORIES
  Company Number: GB-MHRA-TPP26490307C10718429YC1743513510504

PATIENT

DRUGS (3)
  1. ATORVASTATIN [Suspect]
     Active Substance: ATORVASTATIN
     Indication: Blood cholesterol
     Dosage: ONE TABLET TO BE TAKEN DAILY TO LOWER CHOLESTER...
     Route: 065
     Dates: start: 20250318
  2. MEBEVERINE HYDROCHLORIDE [Concomitant]
     Active Substance: MEBEVERINE HYDROCHLORIDE
     Indication: Ill-defined disorder
     Dosage: TAKE ONE TABLET THREE TIMES A DAY
     Route: 065
     Dates: start: 20240404, end: 20250121
  3. OMEPRAZOLE [Concomitant]
     Active Substance: OMEPRAZOLE
     Indication: Ill-defined disorder
     Dosage: TAKE ONE CAPSULE DAILY FOR 4 WEEKS THEN ONCE DA...
     Route: 065
     Dates: start: 20240404

REACTIONS (3)
  - Decreased appetite [Recovering/Resolving]
  - Headache [Unknown]
  - Pain in extremity [Recovering/Resolving]
